FAERS Safety Report 9997881 (Version 2)
Quarter: 2014Q1

REPORT INFORMATION
  Report Type: Spontaneous
  Country: BR (occurrence: BR)
  Receive Date: 20140311
  Receipt Date: 20140326
  Transmission Date: 20141002
  Serious: Yes (Other)
  Sender: FDA-Public Use
  Company Number: BR-PFIZER INC-2014067739

PATIENT
  Age: 73 Year
  Sex: Male

DRUGS (1)
  1. CELEBRA [Suspect]
     Indication: ANTIINFLAMMATORY THERAPY
     Dosage: 400 MG (2 CAPSULES), DAILY
     Dates: start: 20140303

REACTIONS (3)
  - Haematochezia [Recovered/Resolved]
  - Urinary incontinence [Recovered/Resolved]
  - Faecal incontinence [Recovered/Resolved]
